FAERS Safety Report 24000120 (Version 2)
Quarter: 2024Q3

REPORT INFORMATION
  Report Type: Spontaneous
  Country: JP (occurrence: JP)
  Receive Date: 20240621
  Receipt Date: 20240726
  Transmission Date: 20241017
  Serious: Yes (Death, Hospitalization, Disabling, Other)
  Sender: DAIICHI
  Company Number: JP-DSJP-DSJ-2024-127390

PATIENT
  Age: 89 Year
  Sex: Female
  Weight: 47.5 kg

DRUGS (1)
  1. EDOXABAN TOSYLATE [Suspect]
     Active Substance: EDOXABAN TOSYLATE
     Indication: Atrial fibrillation
     Dosage: 15 MG, QD
     Route: 048
     Dates: start: 20220413

REACTIONS (3)
  - Embolic stroke [Recovered/Resolved with Sequelae]
  - COVID-19 [Fatal]
  - Multiple organ dysfunction syndrome [Fatal]

NARRATIVE: CASE EVENT DATE: 20231101
